FAERS Safety Report 7315681-2 (Version None)
Quarter: 2011Q1

REPORT INFORMATION
  Report Type: 
  Country: None (occurrence: None)
  Receive Date: 20110225
  Receipt Date: 20110218
  Transmission Date: 20110831
  Serious: Yes (Hospitalization, Other)
  Sender: FDA-Public Use
  Company Number: US-US-EMD SERONO, INC.-233397J09USA

PATIENT
  Sex: Female
  Weight: 84 kg

DRUGS (9)
  1. ACTOS [Concomitant]
     Indication: DIABETES MELLITUS
  2. LANTUS [Concomitant]
     Indication: DIABETES MELLITUS
  3. LEXAPRO [Concomitant]
     Indication: DEPRESSION
  4. HUMULIN INSULIN [Concomitant]
     Indication: DIABETES MELLITUS
  5. GLUCERNA [Concomitant]
     Indication: WEIGHT DECREASED
     Dates: start: 20090101
  6. REBIF [Suspect]
     Indication: MULTIPLE SCLEROSIS
     Route: 058
     Dates: start: 20040105, end: 20090928
  7. RAMIPRIL [Concomitant]
     Indication: HYPERTENSION
  8. REBIF [Suspect]
     Route: 058
     Dates: start: 20091117
  9. BENICAR [Concomitant]
     Indication: HYPERTENSION

REACTIONS (10)
  - FALL [None]
  - CHEST PAIN [None]
  - PALPITATIONS [None]
  - HEART RATE INCREASED [None]
  - BILE DUCT OBSTRUCTION [None]
  - BIOPSY BILE DUCT ABNORMAL [None]
  - CEREBRAL THROMBOSIS [None]
  - PANCREATITIS NECROTISING [None]
  - PANCREATITIS ACUTE [None]
  - RECTAL HAEMORRHAGE [None]
